FAERS Safety Report 5781617-9 (Version None)
Quarter: 2008Q2

REPORT INFORMATION
  Report Type: 
  Country: None (occurrence: None)
  Receive Date: 20080619
  Receipt Date: 20080609
  Transmission Date: 20081010
  Serious: Yes (Hospitalization)
  Sender: FDA-Public Use
  Company Number: 08US001075

PATIENT
  Age: 54 Year
  Sex: Male

DRUGS (3)
  1. LITHIUM CARBONATE [Suspect]
     Indication: BIPOLAR DISORDER
  2. ATENOLOL [Concomitant]
  3. GABAPENTIN [Concomitant]

REACTIONS (14)
  - BLOOD PH DECREASED [None]
  - CARDIOMEGALY [None]
  - CARDIOTOXICITY [None]
  - CHEST DISCOMFORT [None]
  - HAEMODIALYSIS [None]
  - HEART RATE IRREGULAR [None]
  - LETHARGY [None]
  - NODAL RHYTHM [None]
  - PRESYNCOPE [None]
  - RENAL FAILURE ACUTE [None]
  - SINUS ARREST [None]
  - SINUS ARRHYTHMIA [None]
  - SOMNOLENCE [None]
  - THERAPEUTIC AGENT TOXICITY [None]
